FAERS Safety Report 8323193-2 (Version None)
Quarter: 2012Q2

REPORT INFORMATION
  Report Type: 
  Country: None (occurrence: None)
  Receive Date: 20120430
  Receipt Date: 20120418
  Transmission Date: 20120825
  Serious: Yes (Life-Threatening, Hospitalization)
  Sender: FDA-Public Use
  Company Number: NL-MEDIMMUNE-MEDI-0015330

PATIENT
  Sex: Male
  Weight: 13.5 kg

DRUGS (4)
  1. SYNAGIS [Suspect]
     Indication: CANAVAN DISEASE
     Route: 030
     Dates: start: 20111007, end: 20120223
  2. SYNAGIS [Suspect]
     Route: 030
     Dates: start: 20120322, end: 20120418
  3. TOPIRAMATE [Suspect]
     Route: 030
  4. ANTIBIOTICS NOS [Concomitant]
     Route: 048

REACTIONS (13)
  - PNEUMONIA KLEBSIELLA [None]
  - ASTHENIA [None]
  - ENDOTRACHEAL INTUBATION [None]
  - VOMITING [None]
  - PNEUMONIA [None]
  - DYSPNOEA [None]
  - ACIDOSIS [None]
  - SPUTUM INCREASED [None]
  - DYSPHAGIA [None]
  - RHINORRHOEA [None]
  - RESPIRATORY SYNCYTIAL VIRUS TEST POSITIVE [None]
  - NASOPHARYNGITIS [None]
  - PYREXIA [None]
